FAERS Safety Report 19156504 (Version 2)
Quarter: 2021Q2

REPORT INFORMATION
  Report Type: Spontaneous
  Country: NL (occurrence: NL)
  Receive Date: 20210420
  Receipt Date: 20210427
  Transmission Date: 20210717
  Serious: Yes (Other)
  Sender: FDA-Public Use
  Company Number: NL-AUROBINDO-AUR-APL-2021-015429

PATIENT
  Age: 73 Year
  Sex: Male
  Weight: 90 kg

DRUGS (2)
  1. LISINOPRIL AUROBINDO TABLETS 10MG [Suspect]
     Active Substance: LISINOPRIL
     Indication: HYPERTENSION
     Dosage: 10 MILLIGRAM, ONCE A DAY (1X PER DAG 1 STUK)
     Route: 065
     Dates: start: 20210314, end: 20210326
  2. LEVOTHYROXINE. [Concomitant]
     Active Substance: LEVOTHYROXINE
     Indication: PRODUCT USED FOR UNKNOWN INDICATION
     Dosage: 137.5 MICROGRAM
     Route: 065

REACTIONS (7)
  - Vision blurred [Recovering/Resolving]
  - Rash pruritic [Unknown]
  - Tachycardia [Unknown]
  - Fatigue [Unknown]
  - Therapeutic response unexpected [Unknown]
  - Arrhythmia [Unknown]
  - Chest pain [Unknown]

NARRATIVE: CASE EVENT DATE: 20210326
